FAERS Safety Report 12678238 (Version 3)
Quarter: 2016Q4

REPORT INFORMATION
  Report Type: Spontaneous
  Country: US (occurrence: US)
  Receive Date: 20160823
  Receipt Date: 20161018
  Transmission Date: 20170207
  Serious: Yes (Other)
  Sender: FDA-Public Use
  Company Number: US-BEH-2016072830

PATIENT
  Age: 45 Year
  Sex: Female

DRUGS (1)
  1. HIZENTRA [Suspect]
     Active Substance: HUMAN IMMUNOGLOBULIN G
     Indication: IMMUNODEFICIENCY COMMON VARIABLE
     Dosage: 15 G, QW
     Route: 065
     Dates: start: 20160115

REACTIONS (2)
  - Limb operation [Recovering/Resolving]
  - Fall [Recovering/Resolving]
